FAERS Safety Report 24800610 (Version 1)
Quarter: 2025Q1

REPORT INFORMATION
  Report Type: Spontaneous
  Country: US (occurrence: US)
  Receive Date: 20250102
  Receipt Date: 20250102
  Transmission Date: 20250409
  Serious: No
  Sender: TAIHO ONCOLOGY INC
  Company Number: US-TAIHOP-2024-012625

PATIENT
  Sex: Female

DRUGS (1)
  1. INQOVI [Suspect]
     Active Substance: CEDAZURIDINE\DECITABINE
     Indication: Pulmonary embolism
     Dosage: 1 TABLET (135MG); CYCLE 1
     Route: 048
     Dates: start: 20241207

REACTIONS (2)
  - Skin burning sensation [Unknown]
  - Product use in unapproved indication [Unknown]
